FAERS Safety Report 9611589 (Version 3)
Quarter: 2013Q4

REPORT INFORMATION
  Report Type: Spontaneous
  Country: DE (occurrence: DE)
  Receive Date: 20131010
  Receipt Date: 20131218
  Transmission Date: 20140711
  Serious: Yes (Hospitalization, Other)
  Sender: FDA-Public Use
  Company Number: PHHY2013DE112361

PATIENT
  Age: 69 Year
  Sex: Male
  Weight: 95 kg

DRUGS (6)
  1. TASIGNA [Suspect]
     Indication: CHRONIC MYELOID LEUKAEMIA
     Dosage: 300 MG, BID
     Route: 048
     Dates: start: 201103, end: 201308
  2. ATACAND [Concomitant]
     Indication: HYPERTENSION
     Dosage: 32 MG, DAILY
     Route: 048
  3. BISOPROLOL [Concomitant]
     Indication: HYPERTENSION
     Dosage: 10 MG, DAILY
     Route: 048
  4. PANTOZOL [Concomitant]
     Indication: GASTRITIS
     Dosage: 20 MG, DAILY
     Route: 048
  5. TORASEMIDE [Concomitant]
     Indication: HYPERTENSION
     Dosage: 5 MG, DAILY
     Route: 048
  6. AMLODIPIN [Concomitant]
     Indication: HYPERTENSION
     Dosage: 5 MG, DAILY
     Route: 048

REACTIONS (7)
  - Brain stem infarction [Recovered/Resolved with Sequelae]
  - Cerebral infarction [Recovered/Resolved with Sequelae]
  - Aphasia [Recovering/Resolving]
  - Dysphagia [Recovered/Resolved]
  - Gait disturbance [Recovering/Resolving]
  - Speech disorder [Recovering/Resolving]
  - Neuropathy peripheral [Recovering/Resolving]
